FAERS Safety Report 21964265 (Version 1)
Quarter: 2023Q1

REPORT INFORMATION
  Report Type: Spontaneous
  Country: US (occurrence: US)
  Receive Date: 20230207
  Receipt Date: 20230207
  Transmission Date: 20230418
  Serious: Yes (Hospitalization)
  Sender: FDA-Public Use
  Company Number: US-MYLANLABS-2023M1012522

PATIENT
  Age: 66 Year
  Sex: Male

DRUGS (3)
  1. AMIODARONE [Suspect]
     Active Substance: AMIODARONE
     Indication: Arrhythmic storm
     Dosage: UNK
     Route: 065
  2. SOTALOL [Suspect]
     Active Substance: SOTALOL
     Indication: Arrhythmic storm
     Dosage: UNK
     Route: 065
  3. DOFETILIDE [Suspect]
     Active Substance: DOFETILIDE
     Indication: Arrhythmic storm
     Dosage: UNK
     Route: 065

REACTIONS (1)
  - Treatment failure [Unknown]
